FAERS Safety Report 26193607 (Version 1)
Quarter: 2025Q4

REPORT INFORMATION
  Report Type: Spontaneous
  Country: GB (occurrence: GB)
  Receive Date: 20251224
  Receipt Date: 20251224
  Transmission Date: 20260118
  Serious: Yes (Other)
  Sender: ACCORD
  Company Number: None

PATIENT
  Age: 63 Year
  Sex: Female
  Weight: 64 kg

DRUGS (7)
  1. EZETIMIBE [Suspect]
     Active Substance: EZETIMIBE
     Indication: Ill-defined disorder
     Dosage: STRENGTH: 10 MG
     Dates: start: 20251212
  2. EZETIMIBE [Concomitant]
     Active Substance: EZETIMIBE
     Indication: Blood cholesterol increased
     Dosage: TAKE ONE TABLET ONCE A DAY TO LOWER CHOLESTEROL..
     Dates: start: 20251126
  3. CALCIUM\CHOLECALCIFEROL [Concomitant]
     Active Substance: CALCIUM\CHOLECALCIFEROL
     Indication: Ill-defined disorder
     Dosage: CHEW ONE DAILY
     Dates: start: 20250325
  4. LEVOTHYROXINE [Concomitant]
     Active Substance: LEVOTHYROXINE
     Indication: Ill-defined disorder
     Dosage: TAKE ONE EACH MORNING
     Dates: start: 20241108
  5. PRAVASTATIN [Concomitant]
     Active Substance: PRAVASTATIN
     Indication: Ill-defined disorder
     Dosage: TAKE ONE AT NIGHT (REPLACES ROSUVASTATIN)
     Dates: start: 20241108
  6. ALENDRONIC ACID [Concomitant]
     Active Substance: ALENDRONIC ACID
     Indication: Ill-defined disorder
     Dosage: TAKE ONE WEEKLY - RV APRIL 2030
     Dates: start: 20250325
  7. EZETIMIBE [Suspect]
     Active Substance: EZETIMIBE
     Indication: Adverse drug reaction
     Dates: start: 20251201

REACTIONS (2)
  - Palpitations [Recovered/Resolved]
  - Tachycardia [Recovered/Resolved]

NARRATIVE: CASE EVENT DATE: 20251207
